FAERS Safety Report 17099981 (Version 1)
Quarter: 2019Q4

REPORT INFORMATION
  Report Type: Spontaneous
  Country: US (occurrence: US)
  Receive Date: 20191202
  Receipt Date: 20191202
  Transmission Date: 20200122
  Serious: Yes (Other)
  Sender: FDA-Public Use
  Company Number: US-ROCHE-2480858

PATIENT
  Age: 52 Year
  Sex: Female

DRUGS (1)
  1. ACTEMRA [Suspect]
     Active Substance: TOCILIZUMAB
     Indication: RHEUMATOID ARTHRITIS
     Dosage: 162 MG/0.9M
     Route: 058
     Dates: start: 20181101

REACTIONS (2)
  - Hepatic cirrhosis [Unknown]
  - Hepatic enzyme increased [Unknown]

NARRATIVE: CASE EVENT DATE: 20181201
